FAERS Safety Report 24561706 (Version 1)
Quarter: 2024Q4

REPORT INFORMATION
  Report Type: Spontaneous
  Country: US (occurrence: US)
  Receive Date: 20241029
  Receipt Date: 20241029
  Transmission Date: 20250115
  Serious: Yes (Other)
  Sender: GLAXOSMITHKLINE
  Company Number: US-GSK-US2024AMR132251

PATIENT

DRUGS (1)
  1. ALBUTEROL SULFATE [Suspect]
     Active Substance: ALBUTEROL SULFATE
     Indication: Product used for unknown indication
     Dosage: UNK 90 MCG/ACTUATION HFA AEROSOL INHALER

REACTIONS (4)
  - Hallucination [Unknown]
  - Respiratory arrest [Unknown]
  - Pruritus [Unknown]
  - Peripheral swelling [Unknown]
